FAERS Safety Report 4898370-3 (Version None)
Quarter: 2006Q1

REPORT INFORMATION
  Report Type: 
  Country: None (occurrence: None)
  Receive Date: 20060131
  Receipt Date: 20060131
  Transmission Date: 20060701
  Serious: No
  Sender: FDA-Public Use
  Company Number: None

PATIENT
  Age: 71 Year
  Sex: Male

DRUGS (7)
  1. LISINOPRIL [Suspect]
     Indication: HYPERTENSION
     Dosage: 20 MG BID PO
     Route: 048
     Dates: start: 20050822, end: 20051009
  2. TERAZOSIN [Concomitant]
  3. ATENOLOL [Concomitant]
  4. MOTRIN [Concomitant]
  5. METFORMIN [Concomitant]
  6. OMEPRAZOLE [Concomitant]
  7. ALBUTEROL [Concomitant]

REACTIONS (1)
  - ANGIONEUROTIC OEDEMA [None]
